FAERS Safety Report 5327402-3 (Version None)
Quarter: 2007Q2

REPORT INFORMATION
  Report Type: 
  Country: None (occurrence: None)
  Receive Date: 20070511
  Receipt Date: 20070430
  Transmission Date: 20071010
  Serious: Yes (Hospitalization)
  Sender: FDA-Public Use
  Company Number: 2007SS000021

PATIENT
  Sex: Male
  Weight: 58.6 kg

DRUGS (8)
  1. MYOBLOC [Suspect]
     Indication: SALIVARY HYPERSECRETION
     Dosage: 2500 UNITS; X1
     Dates: start: 20041221, end: 20041221
  2. AGGRENOX [Concomitant]
  3. AVAPRO [Concomitant]
  4. CELEXA [Concomitant]
  5. CORDARONE [Concomitant]
  6. CREATINE [Concomitant]
  7. RILUTEK [Concomitant]
  8. PERCOCET [Concomitant]

REACTIONS (1)
  - PNEUMONIA ASPIRATION [None]
